FAERS Safety Report 15453878 (Version 1)
Quarter: 2018Q4

REPORT INFORMATION
  Report Type: Spontaneous
  Country: IL (occurrence: IL)
  Receive Date: 20181001
  Receipt Date: 20181001
  Transmission Date: 20190204
  Serious: Yes (Other)
  Sender: FDA-Public Use
  Company Number: PHHY2017IL038124

PATIENT
  Age: 54 Year
  Sex: Female

DRUGS (2)
  1. RECLAST [Suspect]
     Active Substance: ZOLEDRONIC ACID
     Indication: BREAST CANCER
     Dosage: UNK
     Route: 042
  2. RECLAST [Suspect]
     Active Substance: ZOLEDRONIC ACID
     Indication: METASTASES TO BONE

REACTIONS (9)
  - Episcleral hyperaemia [Recovering/Resolving]
  - Uveitis [Recovering/Resolving]
  - Intraocular pressure increased [Recovering/Resolving]
  - Ocular hyperaemia [Recovering/Resolving]
  - Visual acuity reduced [Unknown]
  - Retinal pigmentation [Unknown]
  - Anterior chamber inflammation [Recovering/Resolving]
  - Eye pain [Recovering/Resolving]
  - Vision blurred [Recovering/Resolving]
